FAERS Safety Report 20680564 (Version 1)
Quarter: 2022Q2

REPORT INFORMATION
  Report Type: Spontaneous
  Country: US (occurrence: None)
  Receive Date: 20220405
  Receipt Date: 20220405
  Transmission Date: 20220721
  Serious: Yes (Death)
  Sender: FDA-Public Use
  Company Number: None

PATIENT
  Age: 69 Year
  Sex: Female

DRUGS (1)
  1. BOTOX [Suspect]
     Active Substance: ONABOTULINUMTOXINA
     Indication: Migraine
     Dosage: 155 UNITS  OTHER INTRAMUSCULAR? ?
     Route: 030
     Dates: start: 20201120, end: 20220314

REACTIONS (1)
  - Death [None]

NARRATIVE: CASE EVENT DATE: 20220329
